FAERS Safety Report 4765490-3 (Version None)
Quarter: 2005Q3

REPORT INFORMATION
  Report Type: 
  Country: None (occurrence: None)
  Receive Date: 20050908
  Receipt Date: 20050908
  Transmission Date: 20060218
  Serious: Yes (Life-Threatening, Hospitalization)
  Sender: FDA-Public Use
  Company Number: None

PATIENT
  Age: 54 Year
  Sex: Female

DRUGS (2)
  1. LEVAQUIN [Suspect]
     Indication: URINARY TRACT INFECTION
     Dosage: 500 MG QD PO
     Route: 048
     Dates: start: 20050828, end: 20050907
  2. VESICARE [Suspect]
     Indication: BLADDER SPASM
     Dosage: 5 MG QD PO
     Route: 048
     Dates: start: 20050902, end: 20050907

REACTIONS (3)
  - DRUG INTERACTION [None]
  - ELECTROCARDIOGRAM QT INTERVAL ABNORMAL [None]
  - HYPERTENSION [None]
